FAERS Safety Report 13782949 (Version 1)
Quarter: 2017Q3

REPORT INFORMATION
  Report Type: Report from Study
  Country: US (occurrence: US)
  Receive Date: 20170724
  Receipt Date: 20170724
  Transmission Date: 20171127
  Serious: Yes (Other)
  Sender: FDA-Public Use
  Company Number: US-IPSEN BIOPHARMACEUTICALS, INC.-2017-00288

PATIENT
  Sex: Male

DRUGS (9)
  1. HYDROCORTISONE. [Concomitant]
     Active Substance: HYDROCORTISONE
     Dosage: 15 MG IN THE MORNING, 5 MG LATER IN THE DAY
     Dates: start: 20160216
  2. SODIUM CHLORIDE NASAL SPRAY [Concomitant]
     Route: 045
     Dates: start: 20160216
  3. DULCOLAX NOS [Concomitant]
     Active Substance: BISACODYL OR DOCUSATE SODIUM
     Dates: start: 20160216
  4. PULMICORT RESPULES [Concomitant]
     Active Substance: BUDESONIDE
     Dates: start: 20160216
  5. COLACE [Concomitant]
     Active Substance: DOCUSATE SODIUM
     Dates: start: 20160216
  6. HYDROCODONE [Concomitant]
     Active Substance: HYDROCODONE
     Dosage: 10-325 MG
     Dates: start: 20160216
  7. MIRALAX [Concomitant]
     Active Substance: POLYETHYLENE GLYCOL 3350
     Dates: start: 20160216
  8. SENOKOT [Concomitant]
     Active Substance: SENNOSIDES
     Dosage: 2 TABLETS
     Dates: start: 20160216
  9. SOMATULINE DEPOT [Suspect]
     Active Substance: LANREOTIDE ACETATE
     Indication: ACROMEGALY
     Dosage: 90 MG
     Route: 058
     Dates: start: 20160426, end: 2016

REACTIONS (1)
  - Pituitary tumour [Recovering/Resolving]

NARRATIVE: CASE EVENT DATE: 2016
